FAERS Safety Report 17208383 (Version 1)
Quarter: 2019Q4

REPORT INFORMATION
  Report Type: Spontaneous
  Country: US (occurrence: US)
  Receive Date: 20191227
  Receipt Date: 20191227
  Transmission Date: 20200122
  Serious: No
  Sender: FDA-Public Use
  Company Number: US-UCBSA-2018000218

PATIENT
  Sex: Female
  Weight: 90 kg

DRUGS (1)
  1. CIMZIA [Suspect]
     Active Substance: CERTOLIZUMAB PEGOL
     Dosage: UNK
     Dates: start: 2016

REACTIONS (4)
  - Crohn^s disease [Recovered/Resolved]
  - Ill-defined disorder [Unknown]
  - Psoriatic arthropathy [Unknown]
  - Product dose omission [Unknown]
